FAERS Safety Report 7259505-0 (Version None)
Quarter: 2011Q1

REPORT INFORMATION
  Report Type: 
  Country: None (occurrence: None)
  Receive Date: 20110129
  Receipt Date: 20100303
  Transmission Date: 20110831
  Serious: No
  Sender: FDA-Public Use
  Company Number: US-PFIZER INC-2010028282

PATIENT
  Sex: Female
  Weight: 65.76 kg

DRUGS (2)
  1. RELPAX [Suspect]
     Dosage: 20 MG, AS NEEDED
     Route: 048
     Dates: start: 20050701
  2. RELPAX [Suspect]
     Indication: MIGRAINE
     Dosage: 40 MG, UNK
     Route: 048
     Dates: start: 20050701

REACTIONS (1)
  - DRUG INTOLERANCE [None]
